FAERS Safety Report 8356109-3 (Version None)
Quarter: 2012Q1

REPORT INFORMATION
  Report Type: 
  Country: None (occurrence: None)
  Receive Date: 20120315
  Receipt Date: 20110606
  Transmission Date: 20120608
  Serious: Yes (Other)
  Sender: FDA-Public Use
  Company Number: PHHY2011US26549

PATIENT
  Age: 41 Year
  Sex: Female

DRUGS (5)
  1. GILENYA [Suspect]
     Indication: MULTIPLE SCLEROSIS
     Dosage: 0.5MG, QD, ORAL
     Route: 048
     Dates: start: 20110315
  2. TOPAMAX [Concomitant]
  3. CLONAZEPAM [Concomitant]
  4. BACLOFEN [Concomitant]
  5. METFORMIN HCL [Concomitant]

REACTIONS (3)
  - BALANCE DISORDER [None]
  - FATIGUE [None]
  - SECONDARY PROGRESSIVE MULTIPLE SCLEROSIS [None]
